FAERS Safety Report 6676488-2 (Version None)
Quarter: 2010Q2

REPORT INFORMATION
  Report Type: 
  Country: None (occurrence: None)
  Receive Date: 20100412
  Receipt Date: 20100406
  Transmission Date: 20101027
  Serious: Yes (Death, Other)
  Sender: FDA-Public Use
  Company Number: PHHY2010TW21294

PATIENT
  Age: 3 Year
  Sex: Female

DRUGS (4)
  1. GLEEVEC [Suspect]
     Dosage: UNK
     Dates: start: 20010601
  2. HYDROXYUREA [Concomitant]
     Dosage: 20 MG/ KG/DAY ONCE DAILY
     Route: 048
  3. HYDROXYUREA [Concomitant]
     Dosage: DOSE INCREASED
  4. MERCAPTOPURINE [Concomitant]
     Dosage: DOSE INCREASED

REACTIONS (20)
  - ABASIA [None]
  - ARTHRALGIA [None]
  - BLAST CRISIS IN MYELOGENOUS LEUKAEMIA [None]
  - CAPILLARY LEAK SYNDROME [None]
  - CHLOROMA [None]
  - CHROMOSOME ANALYSIS ABNORMAL [None]
  - DRUG INEFFECTIVE [None]
  - FALL [None]
  - FEBRILE NEUTROPENIA [None]
  - INTERNAL FIXATION OF FRACTURE [None]
  - MALIGNANT TUMOUR EXCISION [None]
  - MULTI-ORGAN FAILURE [None]
  - OSTEOLYSIS [None]
  - PANCYTOPENIA [None]
  - PATHOLOGICAL FRACTURE [None]
  - PLEURAL EFFUSION [None]
  - PNEUMONIA [None]
  - RENAL FAILURE ACUTE [None]
  - STAPHYLOCOCCAL SEPSIS [None]
  - SWELLING [None]
